FAERS Safety Report 11631822 (Version 1)
Quarter: 2015Q4

REPORT INFORMATION
  Report Type: Spontaneous
  Country: US (occurrence: None)
  Receive Date: 20151013
  Receipt Date: 20151013
  Transmission Date: 20160304
  Serious: Yes (Hospitalization)
  Sender: FDA-Public Use
  Company Number: None

PATIENT
  Age: 20 Year
  Sex: Female
  Weight: 54.43 kg

DRUGS (6)
  1. THYROID MEDICINE [Concomitant]
     Active Substance: UNSPECIFIED INGREDIENT
  2. BIRTH CONTROL [Concomitant]
     Active Substance: UNSPECIFIED INGREDIENT
  3. HALDOL [Suspect]
     Active Substance: HALOPERIDOL
     Indication: MANIA
     Dates: start: 201109
  4. HALDOL [Suspect]
     Active Substance: HALOPERIDOL
     Indication: BIPOLAR DISORDER
     Dates: start: 201109
  5. LATUDA [Concomitant]
     Active Substance: LURASIDONE HYDROCHLORIDE
  6. DEPAKOTE [Concomitant]
     Active Substance: DIVALPROEX SODIUM

REACTIONS (4)
  - Abnormal behaviour [None]
  - Therapy cessation [None]
  - Drug withdrawal syndrome [None]
  - Feeling abnormal [None]

NARRATIVE: CASE EVENT DATE: 20111026
